FAERS Safety Report 9216718 (Version 1)
Quarter: 2013Q1

REPORT INFORMATION
  Report Type: Spontaneous
  Country: US (occurrence: None)
  Receive Date: 20130204
  Receipt Date: 20130204
  Transmission Date: 20140127
  Serious: Yes (Other)
  Sender: FDA-Public Use
  Company Number: 1579398

PATIENT
  Age: 63 Year
  Sex: Female

DRUGS (5)
  1. CARBOPLATIN [Suspect]
  2. OXALIPLATIN [Suspect]
  3. PEGYLATED LIPOSOMAL DOXORUBICIN HYDROCHLORIDE [Suspect]
  4. CISPLATIN [Suspect]
     Route: 033
  5. PACLITAXEL [Concomitant]

REACTIONS (3)
  - Hypertension [None]
  - Hydronephrosis [None]
  - Malignant neoplasm progression [None]
